FAERS Safety Report 8116652-9 (Version None)
Quarter: 2012Q1

REPORT INFORMATION
  Report Type: 
  Country: None (occurrence: None)
  Receive Date: 20120206
  Receipt Date: 20120126
  Transmission Date: 20120608
  Serious: Yes (Hospitalization)
  Sender: FDA-Public Use
  Company Number: PHFR2011GB007185

PATIENT
  Sex: Female

DRUGS (10)
  1. AMISULPRIDE [Concomitant]
     Dosage: 400 MG
     Route: 048
  2. SIMVASTATIN [Concomitant]
     Dosage: 40 MG
     Route: 048
  3. TIOTROPIUM [Concomitant]
  4. SERETIDE EVOHALER [Concomitant]
  5. FLUOXETINE [Concomitant]
     Dosage: 20 MG
     Route: 048
  6. METFORMIN HCL [Concomitant]
     Dosage: 1500 MG
     Route: 048
  7. RAMIPRIL [Concomitant]
     Dosage: 2.5 MG
     Route: 048
  8. VENTOLIN [Concomitant]
  9. MOVIPREP [Concomitant]
     Route: 048
  10. CLOZARIL [Suspect]
     Indication: SCHIZOPHRENIA
     Dosage: 600 MG
     Route: 048
     Dates: start: 20010701

REACTIONS (4)
  - LOWER RESPIRATORY TRACT INFECTION [None]
  - NEUTROPHIL COUNT INCREASED [None]
  - CHRONIC OBSTRUCTIVE PULMONARY DISEASE [None]
  - WHITE BLOOD CELL COUNT INCREASED [None]
